FAERS Safety Report 21964522 (Version 1)
Quarter: 2023Q1

REPORT INFORMATION
  Report Type: Spontaneous
  Country: US (occurrence: US)
  Receive Date: 20230207
  Receipt Date: 20230207
  Transmission Date: 20230418
  Serious: No
  Sender: FDA-Public Use
  Company Number: US-NEURELIS, INC.-2022NEU000137

PATIENT

DRUGS (3)
  1. VALTOCO [Suspect]
     Active Substance: DIAZEPAM
     Indication: Seizure
     Dosage: 10 MILLIGRAM
     Route: 045
     Dates: start: 20221201
  2. VIMPAT [Concomitant]
     Active Substance: LACOSAMIDE
     Indication: Seizure
     Dosage: 7 MILLIGRAM, BID
     Route: 048
  3. CENOBAMATE [Concomitant]
     Active Substance: CENOBAMATE
     Indication: Seizure
     Dosage: 125 MILLIGRAM, QD
     Route: 048

REACTIONS (1)
  - Therapeutic response unexpected [Unknown]

NARRATIVE: CASE EVENT DATE: 20221201
